FAERS Safety Report 8828378 (Version 2)
Quarter: 2013Q1

REPORT INFORMATION
  Report Type: Spontaneous
  Country: US (occurrence: US)
  Receive Date: 20121005
  Receipt Date: 20130128
  Transmission Date: 20140127
  Serious: No
  Sender: FDA-Public Use
  Company Number: US-BIOGENIDEC-2012BI040897

PATIENT
  Age: 39 Year
  Sex: Female

DRUGS (1)
  1. TYSABRI [Suspect]
     Indication: MULTIPLE SCLEROSIS
     Route: 042
     Dates: start: 20080417

REACTIONS (7)
  - Vision blurred [Recovered/Resolved]
  - Migraine [Not Recovered/Not Resolved]
  - Paraesthesia [Recovered/Resolved]
  - Vaginitis bacterial [Recovered/Resolved]
  - Headache [Recovered/Resolved]
  - Rash [Recovered/Resolved with Sequelae]
  - Herpes virus infection [Recovered/Resolved]
